FAERS Safety Report 20174653 (Version 2)
Quarter: 2021Q4

REPORT INFORMATION
  Report Type: Report from Study
  Country: US (occurrence: None)
  Receive Date: 20211213
  Receipt Date: 20211217
  Transmission Date: 20220303
  Serious: Yes (Hospitalization)
  Sender: FDA-Public Use
  Company Number: US-ROCHE-2973572

PATIENT
  Age: 55 Year
  Sex: Female
  Weight: 83.8 kg

DRUGS (22)
  1. OCRELIZUMAB [Suspect]
     Active Substance: OCRELIZUMAB
     Indication: Multiple sclerosis
     Dosage: DOSE CONCENTRATION: 1.13 MG/ML
     Route: 042
     Dates: start: 20200304
  2. OCRELIZUMAB [Suspect]
     Active Substance: OCRELIZUMAB
     Indication: Multiple sclerosis
     Dosage: DOSE CONCENTRATION: 40 MG/ML; MOST RECENT DOSE OF STUDY DRUG PRIOR TO AE: 13/JUL/2021 11:58 AM (30 M
     Route: 058
     Dates: start: 20191203
  3. HYALURONIDASE (HUMAN RECOMBINANT) [Suspect]
     Active Substance: HYALURONIDASE (HUMAN RECOMBINANT)
     Indication: Multiple sclerosis
     Dosage: DOSE CONCENTRATION: 40 MG/ML; MOST RECENT DOSE OF STUDY DRUG PRIOR TO AE: 13/JUL/2021 11:58 AM (30 M
     Route: 058
     Dates: start: 20191203
  4. AMPYRA [Concomitant]
     Active Substance: DALFAMPRIDINE
     Route: 048
     Dates: start: 201809
  5. PHENTERMINE HYDROCHLORIDE [Concomitant]
     Active Substance: PHENTERMINE HYDROCHLORIDE
     Indication: Weight decreased
     Route: 048
     Dates: start: 201910
  6. PREGABALIN [Concomitant]
     Active Substance: PREGABALIN
     Route: 048
     Dates: start: 201601
  7. HYDROXYZINE HYDROCHLORIDE [Concomitant]
     Active Substance: HYDROXYZINE HYDROCHLORIDE
     Route: 048
     Dates: start: 201907
  8. TRIAMCINOLONE [Concomitant]
     Active Substance: TRIAMCINOLONE
     Indication: Eczema
     Dosage: 1 U
     Route: 061
     Dates: start: 201907
  9. BENADRYL [Concomitant]
     Active Substance: DIPHENHYDRAMINE HYDROCHLORIDE
     Indication: Insomnia
     Route: 048
     Dates: start: 201512
  10. TYLENOL [Concomitant]
     Active Substance: ACETAMINOPHEN
     Indication: Ligament sprain
     Route: 048
     Dates: start: 20200525
  11. VOLTAREN [Concomitant]
     Active Substance: DICLOFENAC SODIUM
     Indication: Back pain
     Dosage: 1 U
     Route: 061
     Dates: start: 20210127
  12. ERGOCALCIFEROL [Concomitant]
     Active Substance: ERGOCALCIFEROL
     Indication: Vitamin D deficiency
     Route: 048
     Dates: start: 20210520
  13. ROBAXIN [Concomitant]
     Active Substance: METHOCARBAMOL
     Indication: Muscle spasticity
     Route: 048
     Dates: start: 20210624
  14. MODAFINIL [Concomitant]
     Active Substance: MODAFINIL
     Indication: Fatigue
     Route: 048
     Dates: start: 20210106
  15. BACTRIM DS [Concomitant]
     Active Substance: SULFAMETHOXAZOLE\TRIMETHOPRIM
     Indication: Prophylaxis
     Dosage: 1 U
     Route: 048
     Dates: start: 20210709
  16. PREMARIN [Concomitant]
     Active Substance: ESTROGENS, CONJUGATED
     Indication: Prophylaxis
     Dosage: 0.625 OTHER
     Route: 067
     Dates: start: 20210526
  17. PREGABALIN [Concomitant]
     Active Substance: PREGABALIN
     Route: 048
     Dates: start: 20210713
  18. GOODYS [Concomitant]
     Active Substance: ACETAMINOPHEN\ASPIRIN\CAFFEINE
     Indication: Injection site reaction
     Dosage: 1 U
     Route: 048
     Dates: start: 20210713
  19. EXCEDRIN MIGRAINE [Concomitant]
     Active Substance: ACETAMINOPHEN\ASPIRIN\CAFFEINE
     Route: 048
     Dates: start: 20210126
  20. DEXAMETHASONE [Concomitant]
     Active Substance: DEXAMETHASONE
     Indication: COVID-19
     Route: 048
     Dates: start: 20211004
  21. MUCINEX [Concomitant]
     Active Substance: GUAIFENESIN
     Indication: COVID-19
     Route: 048
     Dates: start: 20211004
  22. TESSALON [Concomitant]
     Active Substance: BENZONATATE
     Indication: COVID-19
     Route: 048
     Dates: start: 20211005

REACTIONS (1)
  - Muscular weakness [Not Recovered/Not Resolved]

NARRATIVE: CASE EVENT DATE: 20211201
